FAERS Safety Report 4265011-8 (Version None)
Quarter: 2004Q1

REPORT INFORMATION
  Report Type: 
  Country: None (occurrence: None)
  Receive Date: 20040105
  Receipt Date: 20031225
  Transmission Date: 20041129
  Serious: Yes (Life-Threatening, Other)
  Sender: FDA-Public Use
  Company Number: CHNY2003JP01475

PATIENT
  Age: 65 Year
  Sex: Female

DRUGS (1)
  1. PURSENNID(NCH)(SENNA GLYCOSIDES (CA SALTS OF PURIFIED SENNA EXTRACT)(T [Suspect]
     Indication: CONSTIPATION
     Dosage: 360 MG, ONCE/SINGLE, ORAL
     Route: 048

REACTIONS (6)
  - FAECALOMA [None]
  - GASTROINTESTINAL INJURY [None]
  - INFECTION [None]
  - INTESTINAL HYPERMOTILITY [None]
  - RENAL FAILURE ACUTE [None]
  - SURGERY [None]
